FAERS Safety Report 5603814-5 (Version None)
Quarter: 2008Q1

REPORT INFORMATION
  Report Type: 
  Country: None (occurrence: None)
  Receive Date: 20080123
  Receipt Date: 20080116
  Transmission Date: 20080703
  Serious: Yes (Death, Life-Threatening, Hospitalization)
  Sender: FDA-Public Use
  Company Number: 2006-07-0267

PATIENT
  Age: 51 Year
  Sex: Male
  Weight: 107 kg

DRUGS (12)
  1. PEG-INTRON [Suspect]
     Indication: HEPATITIS C
     Dosage: 80 MCG; QW; SC, 120 MCG; QW; SC
     Route: 058
     Dates: end: 20060621
  2. PEG-INTRON [Suspect]
     Indication: HEPATITIS C
     Dosage: 80 MCG; QW; SC, 120 MCG; QW; SC
     Route: 058
     Dates: start: 20060405
  3. REBETOL [Suspect]
     Indication: HEPATITIS C
     Dosage: 15 ML, BID, PO; 10 ML, BID, PO
     Route: 048
     Dates: end: 20060702
  4. REBETOL [Suspect]
     Indication: HEPATITIS C
     Dosage: 15 ML, BID, PO; 10 ML, BID, PO
     Route: 048
     Dates: start: 20060405
  5. PROCRIT [Suspect]
     Indication: ANAEMIA
     Dosage: 4000 IU, BIW, SC
     Route: 058
     Dates: start: 20060418, end: 20060620
  6. NEUPOGEN (CON.) [Concomitant]
  7. LEXAPRO (CON.) [Concomitant]
  8. DYRENIUM (CON.) [Concomitant]
  9. MULTIVITAMINS (CON.) [Concomitant]
  10. QUININE (CON.) [Concomitant]
  11. LASIX (CON.) [Concomitant]
  12. NEOMYCIN (CON.) [Concomitant]

REACTIONS (18)
  - ACUTE RESPIRATORY DISTRESS SYNDROME [None]
  - ARRHYTHMIA [None]
  - ASTHENIA [None]
  - BLOOD CULTURE POSITIVE [None]
  - BLOOD LACTIC ACID INCREASED [None]
  - CONTINUOUS HAEMODIAFILTRATION [None]
  - ESCHERICHIA INFECTION [None]
  - FALL [None]
  - FATIGUE [None]
  - HEPATIC ENCEPHALOPATHY [None]
  - INTERNATIONAL NORMALISED RATIO INCREASED [None]
  - MULTI-ORGAN FAILURE [None]
  - PERITONITIS BACTERIAL [None]
  - PLATELET COUNT DECREASED [None]
  - RENAL FAILURE ACUTE [None]
  - SEPSIS [None]
  - WHITE BLOOD CELL COUNT DECREASED [None]
  - WHITE BLOOD CELL COUNT INCREASED [None]
